FAERS Safety Report 15979799 (Version 2)
Quarter: 2019Q1

REPORT INFORMATION
  Report Type: Spontaneous
  Country: GB (occurrence: GB)
  Receive Date: 20190219
  Receipt Date: 20190226
  Transmission Date: 20190418
  Serious: Yes (Death, Other)
  Sender: FDA-Public Use
  Company Number: GB-BRISTOL-MYERS SQUIBB COMPANY-BMS-2019-012930

PATIENT
  Age: 86 Year
  Sex: Female

DRUGS (1)
  1. WARFARIN SODIUM. [Suspect]
     Active Substance: WARFARIN SODIUM
     Indication: PNEUMONIA
     Dosage: UNK
     Route: 065

REACTIONS (7)
  - International normalised ratio increased [Fatal]
  - Oesophageal haemorrhage [Unknown]
  - Laryngeal obstruction [Unknown]
  - Tongue haematoma [Fatal]
  - Ecchymosis [Fatal]
  - Respiratory failure [Fatal]
  - Respiratory distress [Fatal]
